FAERS Safety Report 9329107 (Version 1)
Quarter: 2013Q2

REPORT INFORMATION
  Report Type: Spontaneous
  Country: US (occurrence: None)
  Receive Date: 20130531
  Receipt Date: 20130531
  Transmission Date: 20140414
  Serious: Yes (Hospitalization, Other)
  Sender: FDA-Public Use
  Company Number: 2013P1006263

PATIENT
  Age: 27 Year
  Sex: Male

DRUGS (1)
  1. BUPROPION [Suspect]
     Route: 055

REACTIONS (11)
  - Convulsion [None]
  - Serotonin syndrome [None]
  - Drug abuse [None]
  - Chest pain [None]
  - Anxiety [None]
  - Vision blurred [None]
  - Dyskinesia [None]
  - Hypertension [None]
  - Tachycardia [None]
  - Hallucination [None]
  - Urinary incontinence [None]
